FAERS Safety Report 7446049-6 (Version None)
Quarter: 2011Q2

REPORT INFORMATION
  Report Type: 
  Country: None (occurrence: None)
  Receive Date: 20110429
  Receipt Date: 20110426
  Transmission Date: 20111010
  Serious: Yes (Hospitalization, Other)
  Sender: FDA-Public Use
  Company Number: US-PFIZER INC-2011080649

PATIENT
  Sex: Female
  Weight: 68.027 kg

DRUGS (3)
  1. CHANTIX [Suspect]
     Indication: SMOKING CESSATION THERAPY
     Dosage: 0.5 MG, 1X/DAY
     Route: 048
     Dates: start: 20110201, end: 20110418
  2. CLONAZEPAM [Suspect]
     Dosage: 5 MG, 2X/DAY
     Route: 048
     Dates: start: 20110419, end: 20110419
  3. ALLOPURINOL [Concomitant]
     Indication: MIGRAINE
     Dosage: UNK

REACTIONS (5)
  - DIPLOPIA [None]
  - VERTIGO [None]
  - DIZZINESS [None]
  - NAUSEA [None]
  - SUICIDE ATTEMPT [None]
